FAERS Safety Report 14263717 (Version 1)
Quarter: 2017Q4

REPORT INFORMATION
  Report Type: Report from Study
  Country: FR (occurrence: FR)
  Receive Date: 20171208
  Receipt Date: 20171208
  Transmission Date: 20180321
  Serious: Yes (Other)
  Sender: FDA-Public Use
  Company Number: FR-AMGEN-FRASP2017180533

PATIENT
  Age: 56 Year
  Sex: Male

DRUGS (13)
  1. REVLIMID [Concomitant]
     Active Substance: LENALIDOMIDE
     Indication: PLASMA CELL MYELOMA
     Dosage: 25 MG, QD, FROM DAY 1 TO DAY 21
     Dates: start: 20170131, end: 2017
  2. CARFILZOMIB [Suspect]
     Active Substance: CARFILZOMIB
     Dosage: UNK (CYCLE 7)
     Route: 042
     Dates: start: 20170913, end: 2017
  3. CARFILZOMIB [Suspect]
     Active Substance: CARFILZOMIB
     Dosage: 25 MG/M2, UNK (52 MG, CYCLE 8, ON DAY 1, 2, 8, 9, 15 AND 16)
     Route: 042
     Dates: start: 20171011, end: 2017
  4. NEOFORDEX [Concomitant]
     Active Substance: DEXAMETHASONE ACETATE
     Indication: PLASMA CELL MYELOMA
     Dosage: 20 MG, QWK
     Dates: start: 20170131
  5. LOVENOX [Concomitant]
     Active Substance: ENOXAPARIN SODIUM
     Indication: ANTICOAGULANT THERAPY
     Dosage: UNK (40 CONTINUOUSLY)
  6. REVLIMID [Concomitant]
     Active Substance: LENALIDOMIDE
     Dosage: 15 MG, QD
     Dates: start: 2017
  7. KARDEGIC [Concomitant]
     Active Substance: ASPIRIN DL-LYSINE
     Dosage: UNK (75)
  8. ZELITREX [Concomitant]
     Active Substance: VALACYCLOVIR HYDROCHLORIDE
     Dosage: 500, UNK, BID
  9. INNOHEP [Concomitant]
     Active Substance: TINZAPARIN SODIUM
     Dosage: UNK
  10. CARFILZOMIB [Suspect]
     Active Substance: CARFILZOMIB
     Indication: PLASMA CELL MYELOMA
     Dosage: 20 MG/M2, UNK, ON DAYS 1 AND 2
     Route: 042
     Dates: start: 20170131
  11. CARFILZOMIB [Suspect]
     Active Substance: CARFILZOMIB
     Dosage: 27 MG/M2, UNK, ON DAYS 15 AND 16
     Route: 042
     Dates: start: 2017, end: 2017
  12. VIREAD [Concomitant]
     Active Substance: TENOFOVIR DISOPROXIL FUMARATE
     Indication: CHRONIC HEPATITIS B
     Dosage: UNK
     Dates: start: 2017
  13. PENTACARINAT [Concomitant]
     Active Substance: PENTAMIDINE ISETHIONATE
     Dosage: UNK UNK, QMO

REACTIONS (4)
  - Helicobacter gastritis [Unknown]
  - Haemorrhoidal haemorrhage [Unknown]
  - Iron deficiency anaemia [Unknown]
  - Spinal pain [Unknown]

NARRATIVE: CASE EVENT DATE: 2017
